FAERS Safety Report 5103383-2 (Version None)
Quarter: 2006Q3

REPORT INFORMATION
  Report Type: 
  Country: None (occurrence: None)
  Receive Date: 20060908
  Receipt Date: 20060823
  Transmission Date: 20061208
  Serious: Yes (Hospitalization)
  Sender: FDA-Public Use
  Company Number: 2006SP000041

PATIENT
  Age: 53 Year
  Sex: Male

DRUGS (11)
  1. PEG-INTRON [Suspect]
     Indication: HEPATITIS C
     Dosage: SC
     Route: 058
     Dates: start: 20060626
  2. RIBASPHERE [Suspect]
     Indication: HEPATITIS C
     Dates: start: 20060626
  3. GABITRIL [Suspect]
     Dosage: 4 MG; PO
     Route: 048
  4. AMBIEN [Concomitant]
  5. EPZICOM [Concomitant]
  6. KALETRA [Concomitant]
  7. SYNTHROID [Concomitant]
  8. INSOMNIA (INSOMNIA EXACERBATED) [Concomitant]
  9. FATIGUE (FATIGUE) [Concomitant]
  10. DIZZINESS (LIGHT-HEADED) [Concomitant]
  11. NEURALGIA (NEUROPATHIC PAIN) [Concomitant]

REACTIONS (14)
  - AMNESIA [None]
  - CONDITION AGGRAVATED [None]
  - CONFUSIONAL STATE [None]
  - DISORIENTATION [None]
  - DIZZINESS [None]
  - FATIGUE [None]
  - INCORRECT DOSE ADMINISTERED [None]
  - INSOMNIA [None]
  - MUSCLE FATIGUE [None]
  - MYALGIA [None]
  - NEURALGIA [None]
  - RED BLOOD CELL COUNT DECREASED [None]
  - SPEECH DISORDER [None]
  - WHITE BLOOD CELL COUNT DECREASED [None]
